FAERS Safety Report 19790983 (Version 4)
Quarter: 2021Q3

REPORT INFORMATION
  Report Type: Spontaneous
  Country: GB (occurrence: GB)
  Receive Date: 20210906
  Receipt Date: 20210917
  Transmission Date: 20211014
  Serious: Yes (Other)
  Sender: FDA-Public Use
  Company Number: GB-CELLTRION INC.-2021GB011939

PATIENT

DRUGS (2)
  1. REMSIMA [Suspect]
     Active Substance: INFLIXIMAB
     Indication: COLITIS ULCERATIVE
     Dosage: 120 MG, FORTNIGHTLY/EVERY OTHER WEEK
     Route: 058
  2. REMSIMA [Suspect]
     Active Substance: INFLIXIMAB
     Indication: PRODUCT USED FOR UNKNOWN INDICATION
     Dosage: (LAST INFUSION)
     Route: 042
     Dates: start: 202105

REACTIONS (8)
  - Infection [Unknown]
  - Wound secretion [Unknown]
  - Limb injury [Unknown]
  - Product dose omission issue [Unknown]
  - Lower respiratory tract infection [Recovering/Resolving]
  - Rash [Unknown]
  - Treatment delayed [Unknown]
  - Product preparation error [Unknown]
